FAERS Safety Report 9066564 (Version 1)
Quarter: 2013Q1

REPORT INFORMATION
  Report Type: Report from Study
  Country: US (occurrence: US)
  Receive Date: 20130131
  Receipt Date: 20130131
  Transmission Date: 20140127
  Serious: No
  Sender: FDA-Public Use
  Company Number: US-ABBOTT-12P-163-1007872-00

PATIENT
  Age: 73 Year
  Sex: Female

DRUGS (9)
  1. HUMIRA [Suspect]
     Indication: RHEUMATOID ARTHRITIS
     Route: 058
     Dates: start: 201209
  2. METHOTREXATE [Concomitant]
     Indication: RHEUMATOID ARTHRITIS
     Dosage: WEEKLY
  3. HYDROCHLOROTHIAZIDE [Concomitant]
     Indication: PRODUCT USED FOR UNKNOWN INDICATION
  4. NORVASC [Concomitant]
     Indication: HYPERTENSION
  5. TOPROL [Concomitant]
     Indication: HYPERTENSION
  6. ASPIRIN CHILDREN [Concomitant]
     Indication: PROPHYLAXIS
     Dosage: DAILY
  7. BENADRYL [Concomitant]
     Indication: HYPERSENSITIVITY
     Dosage: AT BEDTIME
  8. MULTIVITAMIN [Concomitant]
     Indication: SUPPLEMENTATION THERAPY
  9. FOLIC ACID [Concomitant]
     Indication: VITAMIN SUPPLEMENTATION

REACTIONS (2)
  - Injection site pain [Recovered/Resolved]
  - Pain [Recovered/Resolved]
